FAERS Safety Report 14760566 (Version 3)
Quarter: 2018Q3

REPORT INFORMATION
  Report Type: Report from Study
  Country: US (occurrence: US)
  Receive Date: 20180414
  Receipt Date: 20180704
  Transmission Date: 20181010
  Serious: Yes (Other)
  Sender: FDA-Public Use
  Company Number: US-TEVA-2018-US-880485

PATIENT
  Sex: Female

DRUGS (1)
  1. CLARAVIS [Suspect]
     Active Substance: ISOTRETINOIN
     Dosage: 30 MILLIGRAM DAILY; STRENGTH: 30 (UNIT NOT REPORTED)
     Dates: start: 20180108, end: 20180201

REACTIONS (3)
  - Maternal exposure during pregnancy [Unknown]
  - Unintended pregnancy [Unknown]
  - Abortion induced [Unknown]
